FAERS Safety Report 9768059 (Version 2)
Quarter: 2014Q1

REPORT INFORMATION
  Report Type: Report from Study
  Country: TR (occurrence: TR)
  Receive Date: 20131217
  Receipt Date: 20140117
  Transmission Date: 20141002
  Serious: Yes (Hospitalization)
  Sender: FDA-Public Use
  Company Number: TR-ABBVIE-13P-161-1179468-00

PATIENT
  Age: 43 Year
  Sex: Male
  Weight: 62 kg

DRUGS (2)
  1. HUMIRA [Suspect]
     Indication: PSORIASIS
     Route: 058
     Dates: start: 20120802, end: 20131127
  2. HUMIRA [Suspect]
     Dates: start: 20131223

REACTIONS (1)
  - Haemorrhoids [Recovered/Resolved]
